FAERS Safety Report 8809368 (Version 2)
Quarter: 2012Q4

REPORT INFORMATION
  Report Type: 
  Country: GB (occurrence: GB)
  Receive Date: 20120926
  Receipt Date: 20121217
  Transmission Date: 20130627
  Serious: Yes (Other)
  Sender: FDA-Public Use
  Company Number: GB-JNJFOC-20120910592

PATIENT
  Sex: Female

DRUGS (9)
  1. STELARA [Suspect]
     Indication: PSORIASIS
     Route: 058
  2. STELARA [Suspect]
     Indication: PSORIASIS
     Route: 058
     Dates: start: 20110303
  3. STELARA [Suspect]
     Indication: PSORIASIS
     Route: 058
     Dates: start: 20120820
  4. FENTANYL [Concomitant]
     Indication: PAIN
     Route: 065
  5. GABAPENTIN [Concomitant]
     Indication: PAIN
     Route: 065
  6. ARCOXIA [Concomitant]
     Indication: PAIN
     Route: 065
  7. TRAMADOL [Concomitant]
     Indication: PAIN
     Route: 065
  8. CITALOPRAM [Concomitant]
     Indication: DEPRESSION
     Route: 065
  9. ATARAX [Concomitant]
     Indication: PRURITUS
     Route: 065

REACTIONS (3)
  - Weight increased [Unknown]
  - Psoriasis [Recovered/Resolved]
  - Weight decreased [Recovered/Resolved]
